FAERS Safety Report 4380107-8 (Version None)
Quarter: 2004Q2

REPORT INFORMATION
  Report Type: 
  Country: None (occurrence: None)
  Receive Date: 20040616
  Receipt Date: 20040604
  Transmission Date: 20050107
  Serious: Yes (Other)
  Sender: FDA-Public Use
  Company Number: 2004037818

PATIENT
  Age: 82 Year
  Sex: Female
  Weight: 56.246 kg

DRUGS (3)
  1. NATURAL CITRUS LISTERINE (EUCALYPTOL, MENTHOL, METHYL  SALICYLATE, THY [Suspect]
     Dosage: BID, ORAL, TOPICAL
     Route: 048
     Dates: start: 20040504
  2. PRAVACHOL [Concomitant]
  3. TRAVOPROST (TRAVOPROST) [Concomitant]

REACTIONS (2)
  - DYSKINESIA [None]
  - GINGIVAL INFECTION [None]
